FAERS Safety Report 9288514 (Version 2)
Quarter: 2013Q3

REPORT INFORMATION
  Report Type: Spontaneous
  Country: US (occurrence: US)
  Receive Date: 20130514
  Receipt Date: 20130724
  Transmission Date: 20140515
  Serious: No
  Sender: FDA-Public Use
  Company Number: US-009507513-1305USA003473

PATIENT
  Age: 59 Year
  Sex: Female
  Weight: 78.91 kg

DRUGS (16)
  1. VICTRELIS [Suspect]
     Dosage: 800 MG, TID, EVERY 7-9 HOURS
     Route: 048
     Dates: start: 20130314
  2. PEG-INTRON [Suspect]
     Dosage: REDIPEN
     Route: 058
     Dates: start: 20130208
  3. REBETOL [Suspect]
     Dosage: UNK
     Route: 048
     Dates: start: 20130208
  4. CENTRUM SILVER [Concomitant]
     Route: 048
  5. HEMAX (CARBONYL IRON) [Concomitant]
     Dosage: 150 MG, PRN
     Route: 048
  6. DOXAZOSIN MESYLATE [Concomitant]
     Dosage: 8 MG, QD
     Route: 048
  7. LOSARTAN POTASSIUM [Concomitant]
     Route: 048
  8. SYNTHROID [Concomitant]
     Route: 048
  9. ESTRACE [Concomitant]
     Dosage: 2 MG, QD
     Route: 048
  10. CHONDROITIN SULFATE SODIUM (+) GLUCOSAMINE SULFATE [Concomitant]
     Dosage: UNK UNK, PRN
     Route: 048
  11. CELEXA [Concomitant]
     Dosage: 40 MG, QD
     Route: 048
  12. DIOVAN [Concomitant]
     Dosage: 160 MG, QD
  13. FIORICET [Concomitant]
     Dosage: 50 MG - 325 - 40, PRN
  14. HYDROCODONE [Concomitant]
     Dosage: UNK, PRN
  15. ONDANSETRON [Concomitant]
     Dosage: UNK, PRN
  16. RESTORIL (TEMAZEPAM) [Concomitant]
     Dosage: UNK, PRN

REACTIONS (7)
  - Pain [Unknown]
  - Influenza like illness [Unknown]
  - Anaemia [Not Recovered/Not Resolved]
  - Dysgeusia [Unknown]
  - Vomiting [Unknown]
  - Fatigue [Unknown]
  - Headache [Unknown]
